FAERS Safety Report 7969876-5 (Version None)
Quarter: 2011Q4

REPORT INFORMATION
  Report Type: 
  Country: None (occurrence: None)
  Receive Date: 20111122
  Receipt Date: 20110815
  Transmission Date: 20120403
  Serious: No
  Sender: FDA-Public Use
  Company Number: PHEH2011US01511

PATIENT
  Age: 54 Year
  Sex: Female

DRUGS (17)
  1. DETROL [Concomitant]
  2. VITAMIN D [Concomitant]
  3. NEXIUM [Concomitant]
  4. ASPIRIN [Concomitant]
  5. SOMA [Concomitant]
  6. GILENYA [Suspect]
     Indication: MULTIPLE SCLEROSIS
     Dosage: 0.5 MG, QID, ORAL
     Route: 048
  7. ZYRTEC [Concomitant]
  8. MACRONDANTIN (NITROFURANTOIN) [Concomitant]
  9. DESYREL [Concomitant]
  10. STOOL SOFTENER (DOCUSATE SODIUM) [Concomitant]
  11. BENADRYL (AMMONIUM CHLORIDE, DIPHENHYDRAMINE HYDROCHLORIDE, MENTHOL, S [Concomitant]
  12. CYTOMEL (LIOTHYROXINE SODIUM) [Concomitant]
  13. DIAZEPAM [Concomitant]
  14. OXYCODONE HCL [Concomitant]
  15. COUGH SYRUP (ANTIMONY POTASSIUM TARTRATE, PAPAVER SOMNIFERUM TINCTURE, [Concomitant]
  16. MEGESTROL ACETATE [Concomitant]
  17. MIRALAX [Suspect]

REACTIONS (2)
  - PYREXIA [None]
  - DYSPNOEA [None]
